FAERS Safety Report 20948906 (Version 2)
Quarter: 2022Q4

REPORT INFORMATION
  Report Type: Spontaneous
  Country: US (occurrence: US)
  Receive Date: 20220612
  Receipt Date: 20221003
  Transmission Date: 20230113
  Serious: Yes (Other)
  Sender: FDA-Public Use
  Company Number: US-JNJFOC-20220610311

PATIENT
  Age: 57 Year
  Sex: Female

DRUGS (2)
  1. ELMIRON [Suspect]
     Active Substance: PENTOSAN POLYSULFATE SODIUM
     Indication: Cystitis interstitial
     Route: 048
     Dates: start: 20061001, end: 20120501
  2. MITIGARE [Concomitant]
     Active Substance: COLCHICINE
     Indication: Vertigo
     Dates: start: 20150427, end: 20210101

REACTIONS (3)
  - Maculopathy [Unknown]
  - Alopecia [Unknown]
  - Depression [Not Recovered/Not Resolved]

NARRATIVE: CASE EVENT DATE: 20100101
